FAERS Safety Report 6707327-9 (Version None)
Quarter: 2010Q2

REPORT INFORMATION
  Report Type: 
  Country: None (occurrence: None)
  Receive Date: 20100503
  Receipt Date: 20090519
  Transmission Date: 20101027
  Serious: No
  Sender: FDA-Public Use
  Company Number: UY-ASTRAZENECA-2009UW12887

PATIENT
  Age: 43 Year
  Sex: Female
  Weight: 68 kg

DRUGS (3)
  1. NEXIUM [Suspect]
     Route: 048
     Dates: start: 20070101
  2. TAPAZOLE [Concomitant]
  3. TRAZODONE HCL [Concomitant]

REACTIONS (1)
  - DRUG SCREEN FALSE POSITIVE [None]
